FAERS Safety Report 8989765 (Version 1)
Quarter: 2012Q4

REPORT INFORMATION
  Report Type: 
  Country: FR (occurrence: FR)
  Receive Date: 20121228
  Receipt Date: 20121228
  Transmission Date: 20130627
  Serious: Yes (Other)
  Sender: FDA-Public Use
  Company Number: FR-MYLANLABS-2012S1026033

PATIENT

DRUGS (2)
  1. METHOTREXATE [Suspect]
     Indication: ACUTE LYMPHOCYTIC LEUKAEMIA
     Dates: start: 20121018
  2. PIPERACILLIN W/TAZOBACTAM [Suspect]
     Indication: ACUTE LYMPHOCYTIC LEUKAEMIA
     Dates: start: 20121020

REACTIONS (5)
  - Labelled drug-drug interaction medication error [Unknown]
  - Chemotherapeutic drug level increased [Unknown]
  - Mucosal inflammation [Unknown]
  - Headache [Unknown]
  - Pyrexia [None]
